FAERS Safety Report 9332130 (Version 2)
Quarter: 2013Q2

REPORT INFORMATION
  Report Type: Spontaneous
  Country: US (occurrence: US)
  Receive Date: 20130606
  Receipt Date: 20130625
  Transmission Date: 20140414
  Serious: Yes (Hospitalization, Other)
  Sender: FDA-Public Use
  Company Number: US-009507513-1306USA000916

PATIENT
  Age: 54 Year
  Sex: Male

DRUGS (2)
  1. PROVENTIL [Suspect]
     Indication: ASTHMA
     Dosage: 1-2 PUFFS EVERY 4-6 HOURS DAILY
     Route: 055
  2. OXYCODONE [Concomitant]

REACTIONS (2)
  - Suicide attempt [Unknown]
  - Intentional overdose [Unknown]
